FAERS Safety Report 18297702 (Version 1)
Quarter: 2020Q3

REPORT INFORMATION
  Report Type: Spontaneous
  Country: US (occurrence: US)
  Receive Date: 20200922
  Receipt Date: 20200922
  Transmission Date: 20201103
  Serious: No
  Sender: FDA-Public Use
  Company Number: US-ALVOGEN-2020-ALVOGEN-113230

PATIENT
  Sex: Female

DRUGS (2)
  1. GRALISE [Suspect]
     Active Substance: GABAPENTIN
     Dosage: 600 MG, QD (DAY 2)
     Route: 048
  2. GRALISE [Suspect]
     Active Substance: GABAPENTIN
     Indication: PAIN
     Dosage: 300 MG, QD (DAY 1)
     Route: 048

REACTIONS (2)
  - Somnolence [Not Recovered/Not Resolved]
  - Drug ineffective for unapproved indication [Unknown]
